FAERS Safety Report 9715699 (Version 4)
Quarter: 2015Q4

REPORT INFORMATION
  Report Type: Report from Study
  Country: US (occurrence: US)
  Receive Date: 20131127
  Receipt Date: 20151110
  Transmission Date: 20160305
  Serious: Yes (Death, Other)
  Sender: FDA-Public Use
  Company Number: US-ROCHE-1308805

PATIENT
  Sex: Male

DRUGS (14)
  1. ZOFRAN [Concomitant]
     Active Substance: ONDANSETRON HYDROCHLORIDE
     Dosage: AS NEEDED
     Route: 065
  2. DECADRON [Concomitant]
     Active Substance: DEXAMETHASONE
     Route: 065
  3. AVASTIN [Suspect]
     Active Substance: BEVACIZUMAB
     Indication: NEOVASCULAR AGE-RELATED MACULAR DEGENERATION
     Route: 042
  4. TYLENOL WITH CODEINE [Concomitant]
     Active Substance: ACETAMINOPHEN\CODEINE PHOSPHATE
     Dosage: AS NEEDED
     Route: 065
  5. IBUPROFEN. [Concomitant]
     Active Substance: IBUPROFEN
     Dosage: 3 PILLS AS NEEDED
     Route: 065
  6. PROPARACAINE [Concomitant]
     Active Substance: PROPARACAINE
  7. AVASTIN [Suspect]
     Active Substance: BEVACIZUMAB
     Indication: DELAYED EFFECTS OF RADIATION
  8. AKTEN [Concomitant]
     Active Substance: LIDOCAINE HYDROCHLORIDE
     Route: 061
  9. LIDOCAINE. [Concomitant]
     Active Substance: LIDOCAINE
  10. LUCENTIS [Suspect]
     Active Substance: RANIBIZUMAB
     Indication: DELAYED EFFECTS OF RADIATION
  11. LUCENTIS [Suspect]
     Active Substance: RANIBIZUMAB
     Indication: RETINAL VEIN OCCLUSION
  12. DEPAKOTE [Concomitant]
     Active Substance: DIVALPROEX SODIUM
     Route: 048
  13. LUCENTIS [Suspect]
     Active Substance: RANIBIZUMAB
     Indication: NEOVASCULAR AGE-RELATED MACULAR DEGENERATION
     Route: 050
  14. TEMODAR [Concomitant]
     Active Substance: TEMOZOLOMIDE
     Route: 065

REACTIONS (6)
  - Brain neoplasm malignant [Unknown]
  - Brain mass [Unknown]
  - Bedridden [Unknown]
  - Papilloedema [Unknown]
  - Death [Fatal]
  - Posterior capsule opacification [Unknown]
